FAERS Safety Report 8815961 (Version 13)
Quarter: 2015Q1

REPORT INFORMATION
  Report Type: Report from Study
  Country: AU (occurrence: AU)
  Receive Date: 20120928
  Receipt Date: 20150226
  Transmission Date: 20150721
  Serious: Yes (Life-Threatening, Hospitalization)
  Sender: FDA-Public Use
  Company Number: AU-ROCHE-1032055

PATIENT
  Age: 72 Year
  Sex: Male
  Weight: 62.5 kg

DRUGS (27)
  1. PRAZOSIN [Concomitant]
     Active Substance: PRAZOSIN
     Route: 065
     Dates: start: 197101
  2. MICARDIS [Concomitant]
     Active Substance: TELMISARTAN
     Route: 065
     Dates: start: 197101, end: 20120126
  3. OMEPRAZOLE. [Concomitant]
     Active Substance: OMEPRAZOLE
     Route: 065
     Dates: start: 20111123
  4. CRESTOR [Concomitant]
     Active Substance: ROSUVASTATIN CALCIUM
     Dosage: AS REQUIRED / MG
     Route: 065
     Dates: start: 2000
  5. ISOPTIN SR [Concomitant]
     Active Substance: VERAPAMIL HYDROCHLORIDE
     Route: 065
     Dates: start: 197101
  6. OMEPRAZOLE. [Concomitant]
     Active Substance: OMEPRAZOLE
     Route: 065
     Dates: start: 20111123
  7. LACTULOSE. [Concomitant]
     Active Substance: LACTULOSE
     Route: 065
     Dates: start: 20111110
  8. MAXOLON [Concomitant]
     Active Substance: METOCLOPRAMIDE HYDROCHLORIDE
     Route: 065
     Dates: start: 201112, end: 201112
  9. VEMURAFENIB [Suspect]
     Active Substance: VEMURAFENIB
     Route: 048
     Dates: start: 20120213
  10. ENDONE [Concomitant]
     Active Substance: OXYCODONE HYDROCHLORIDE
     Route: 065
     Dates: start: 20111110, end: 20120405
  11. PHENERGAN [Concomitant]
     Active Substance: PROMETHAZINE HYDROCHLORIDE
     Route: 065
     Dates: start: 20111212, end: 20111215
  12. VEMURAFENIB [Suspect]
     Active Substance: VEMURAFENIB
     Dosage: DATE OF LAST DOSE PRIOR TO SAE: 25/JAN/2012
     Route: 048
     Dates: start: 20120105, end: 20120126
  13. HEPARIN [Concomitant]
     Active Substance: HEPARIN SODIUM
     Dosage: 10000/ UNIT
     Route: 065
     Dates: start: 20120126, end: 20120130
  14. ASPIRIN. [Concomitant]
     Active Substance: ASPIRIN
     Route: 065
     Dates: start: 20120105
  15. OXYCONTIN [Concomitant]
     Active Substance: OXYCODONE HYDROCHLORIDE
     Route: 065
     Dates: start: 20111110
  16. ONDANSETRON [Concomitant]
     Active Substance: ONDANSETRON
     Route: 065
     Dates: start: 20111212, end: 20111215
  17. OXYCONTIN [Concomitant]
     Active Substance: OXYCODONE HYDROCHLORIDE
     Route: 065
     Dates: start: 20111204
  18. NYSTATIN. [Concomitant]
     Active Substance: NYSTATIN
     Route: 065
     Dates: start: 20111207
  19. NUROFEN [Concomitant]
     Active Substance: IBUPROFEN
     Route: 065
     Dates: start: 20111212, end: 20111215
  20. FUNGILIN LOZENGES [Concomitant]
     Route: 065
     Dates: start: 20111208
  21. VEMURAFENIB [Suspect]
     Active Substance: VEMURAFENIB
     Indication: METASTATIC MALIGNANT MELANOMA
     Dosage: DATE OF MOST RECENT DOSE PRIOR TO SAE: 07/DEC/2011
     Route: 048
     Dates: start: 20111110, end: 20120104
  22. NYSTATIN. [Concomitant]
     Active Substance: NYSTATIN
     Route: 065
     Dates: start: 20111208
  23. COLOXYL + SENNA [Concomitant]
     Route: 065
     Dates: start: 20111110
  24. STEMETIL [Concomitant]
     Active Substance: PROCHLORPERAZINE MALEATE
     Dosage: 25 MG AS REQUIRED/MG
     Route: 065
     Dates: start: 20111208
  25. VERAPAMIL [Concomitant]
     Active Substance: VERAPAMIL HYDROCHLORIDE
     Route: 065
     Dates: start: 201101
  26. ONDANSETRON [Concomitant]
     Active Substance: ONDANSETRON
     Route: 065
     Dates: start: 20120126, end: 20120126
  27. FUNGILIN LOZENGES [Concomitant]
     Route: 065
     Dates: start: 20111208

REACTIONS (7)
  - Haematocrit decreased [None]
  - Weight decreased [None]
  - Oral candidiasis [Recovered/Resolved]
  - Renal impairment [None]
  - Sepsis [Recovered/Resolved]
  - Liver function test abnormal [None]
  - Blood potassium decreased [None]

NARRATIVE: CASE EVENT DATE: 20111208
